FAERS Safety Report 8151936-X (Version None)
Quarter: 2012Q1

REPORT INFORMATION
  Report Type: 
  Country: None (occurrence: None)
  Receive Date: 20120221
  Receipt Date: 20120215
  Transmission Date: 20120608
  Serious: No
  Sender: FDA-Public Use
  Company Number: US-PFIZER INC-2012041939

PATIENT
  Age: 20 Year
  Sex: Female
  Weight: 68.027 kg

DRUGS (4)
  1. ABILIFY [Suspect]
     Indication: BIPOLAR DISORDER
     Dosage: 10 MG, DAILY
     Route: 048
  2. IBUPROFEN (ADVIL) [Concomitant]
     Indication: HEADACHE
     Dosage: 400 MG COUPLE OF TIMES A WEEK
     Route: 048
  3. EFFEXOR XR [Suspect]
     Indication: BIPOLAR DISORDER
     Dosage: 150 MG, DAILY
     Route: 048
  4. SUBOXONE [Concomitant]
     Indication: DRUG DEPENDENCE
     Dosage: 4 MG, 2X/DAY
     Route: 048
     Dates: start: 20120125

REACTIONS (1)
  - DRUG SCREEN POSITIVE [None]
